FAERS Safety Report 9296165 (Version 1)
Quarter: 2013Q2

REPORT INFORMATION
  Report Type: Spontaneous
  Country: DE (occurrence: DE)
  Receive Date: 20130517
  Receipt Date: 20130517
  Transmission Date: 20140414
  Serious: Yes (Other)
  Sender: FDA-Public Use
  Company Number: DE-PFIZER INC-2013151519

PATIENT
  Age: 86 Year
  Sex: Female

DRUGS (2)
  1. RAMILICH [Suspect]
     Indication: HYPERTENSION
     Dosage: 2.5 MG, 1X/DAY
     Route: 048
     Dates: start: 201202
  2. RAMILICH [Suspect]
     Dosage: 10 MG, 1X/DAY
     Route: 048

REACTIONS (3)
  - Intestinal haemorrhage [Not Recovered/Not Resolved]
  - Infection susceptibility increased [Not Recovered/Not Resolved]
  - Fatigue [Not Recovered/Not Resolved]
